FAERS Safety Report 4301602-3 (Version None)
Quarter: 2004Q1

REPORT INFORMATION
  Report Type: 
  Country: None (occurrence: None)
  Receive Date: 20040223
  Receipt Date: 20040217
  Transmission Date: 20041129
  Serious: Yes (Hospitalization)
  Sender: FDA-Public Use
  Company Number: US-BRISTOL-MYERS SQUIBB COMPANY-12509352

PATIENT
  Sex: Female

DRUGS (4)
  1. SUSTIVA [Suspect]
     Indication: HIV INFECTION
     Route: 048
     Dates: start: 20031108, end: 20031110
  2. ZERIT [Concomitant]
  3. EPIVIR [Concomitant]
  4. KALETRA [Concomitant]

REACTIONS (8)
  - ABNORMAL BEHAVIOUR [None]
  - CAESAREAN SECTION [None]
  - COMPLICATIONS OF MATERNAL EXPOSURE TO THERAPEUTIC DRUGS [None]
  - PREGNANCY [None]
  - PREMATURE BABY [None]
  - PREMATURE RUPTURE OF MEMBRANES [None]
  - PSYCHIATRIC SYMPTOM [None]
  - SUICIDAL IDEATION [None]
